FAERS Safety Report 7549454 (Version 3)
Quarter: 2013Q2

REPORT INFORMATION
  Report Type: Spontaneous
  Country: US (occurrence: US)
  Receive Date: 20100823
  Receipt Date: 20130613
  Transmission Date: 20140414
  Serious: Yes (Hospitalization)
  Sender: FDA-Public Use
  Company Number: US-BIOGENIDEC-2010BI027935

PATIENT
  Age: 33 Year
  Sex: Female

DRUGS (1)
  1. TYSABRI [Suspect]
     Indication: MULTIPLE SCLEROSIS
     Route: 042
     Dates: start: 20070917

REACTIONS (4)
  - Herpes zoster [Recovered/Resolved]
  - Gastric bypass [Recovered/Resolved]
  - Cholelithiasis [Recovered/Resolved]
  - Pain [Not Recovered/Not Resolved]
